FAERS Safety Report 6012798-X (Version None)
Quarter: 2008Q4

REPORT INFORMATION
  Report Type: 
  Country: None (occurrence: None)
  Receive Date: 20081219
  Receipt Date: 20081209
  Transmission Date: 20090506
  Serious: No
  Sender: FDA-Public Use
  Company Number: US-JNJFOC-20081102158

PATIENT
  Sex: Female
  Weight: 45.36 kg

DRUGS (8)
  1. FENTANYL TRANSDERMAL SYSTEM [Suspect]
     Indication: MYALGIA
     Route: 062
  2. FENTANYL TRANSDERMAL SYSTEM [Suspect]
     Indication: BONE PAIN
     Route: 062
  3. FENTANYL TRANSDERMAL SYSTEM [Suspect]
     Indication: RHEUMATOID ARTHRITIS
     Route: 062
  4. DURAGESIC-100 [Suspect]
     Indication: PAIN
     Route: 062
  5. ZOLOFT [Concomitant]
     Indication: DEPRESSION
     Route: 048
  6. PERCOCET [Concomitant]
     Indication: BREAKTHROUGH PAIN
     Dosage: 10MG EVERY 4-6 HOURS
     Route: 048
  7. EVISTA [Concomitant]
     Route: 048
  8. OXYCODONE [Concomitant]
     Indication: BREAKTHROUGH PAIN

REACTIONS (3)
  - INADEQUATE ANALGESIA [None]
  - INCORRECT DRUG ADMINISTRATION DURATION [None]
  - PRODUCT QUALITY ISSUE [None]
